FAERS Safety Report 10257120 (Version 1)
Quarter: 2014Q2

REPORT INFORMATION
  Report Type: Spontaneous
  Country: US (occurrence: US)
  Receive Date: 20140625
  Receipt Date: 20140625
  Transmission Date: 20141212
  Serious: No
  Sender: FDA-Public Use
  Company Number: US-009507513-1406USA004869

PATIENT
  Age: 57 Year
  Sex: Female

DRUGS (4)
  1. VICTRELIS [Suspect]
     Dosage: 800 MG (FOUR 200MG CAPSULES) BY MOUTH THREE TIMES DAILY (EVERY 7-9 HOURS)
     Route: 048
  2. RIBAPAK [Suspect]
     Dosage: UNK
     Route: 048
  3. PEGASYS [Suspect]
     Dosage: UNK
  4. ALENDRONATE SODIUM / CHOLCALCIFEROL TABLETS [Concomitant]
     Dosage: UNK
     Route: 048

REACTIONS (4)
  - Dyspnoea [Unknown]
  - Vomiting [Unknown]
  - Wrong technique in drug usage process [Unknown]
  - Extra dose administered [Unknown]
